FAERS Safety Report 23789824 (Version 1)
Quarter: 2024Q2

REPORT INFORMATION
  Report Type: Other
  Country: FR (occurrence: FR)
  Receive Date: 20240426
  Receipt Date: 20240426
  Transmission Date: 20240717
  Serious: Yes (Other)
  Sender: FDA-Public Use
  Company Number: None

PATIENT
  Age: 32 Year
  Sex: Female

DRUGS (5)
  1. MATULANE [Suspect]
     Active Substance: PROCARBAZINE HYDROCHLORIDE
     Indication: Brain neoplasm
     Dosage: PROTOCOL PCV ; C1 DAY8 TO DAY21, C2 DAY8 TO DAY21
     Route: 048
     Dates: start: 20231117, end: 20240121
  2. PROCARBAZINE [Suspect]
     Active Substance: PROCARBAZINE
     Indication: Brain neoplasm
     Dosage: PROTOCOL PCV ; C1 DAY8 TO DAY21, C2 DAY8 TO DAY21
     Route: 048
     Dates: start: 20231117, end: 20240121
  3. KEPPRA [Concomitant]
     Active Substance: LEVETIRACETAM
     Indication: Epilepsy
     Dosage: 750 MG 2 TIMES PER DAY
     Route: 048
     Dates: start: 202305
  4. VINCRISTINE SULFATE [Concomitant]
     Active Substance: VINCRISTINE SULFATE
     Indication: Brain neoplasm
     Dosage: PROTOCOL PCV : C1 DAY8, C1 DAY29, C2 DAY8
     Route: 042
     Dates: start: 20231117, end: 20240109
  5. LOMUSTINE [Concomitant]
     Active Substance: LOMUSTINE
     Indication: Brain neoplasm
     Dosage: PROTOCOLE PCV ; C1 ON 09/11/23, C2 ON 02/01/24
     Route: 048
     Dates: start: 20231109, end: 20240102

REACTIONS (2)
  - Cholestasis [Not Recovered/Not Resolved]
  - Hepatic cytolysis [Not Recovered/Not Resolved]

NARRATIVE: CASE EVENT DATE: 20240130
